FAERS Safety Report 13644700 (Version 1)
Quarter: 2017Q2

REPORT INFORMATION
  Report Type: Spontaneous
  Country: US (occurrence: US)
  Receive Date: 20170612
  Receipt Date: 20170612
  Transmission Date: 20170830
  Serious: Yes (Hospitalization)
  Sender: FDA-Public Use
  Company Number: US-ROCHE-1357954

PATIENT
  Sex: Female

DRUGS (1)
  1. XELODA [Suspect]
     Active Substance: CAPECITABINE
     Indication: BREAST CANCER METASTATIC
     Dosage: 1 WEEK ON, 1 WEEK OFF
     Route: 048
     Dates: start: 201307

REACTIONS (2)
  - Thrombosis [Not Recovered/Not Resolved]
  - Deep vein thrombosis [Recovering/Resolving]
